FAERS Safety Report 6291892-2 (Version None)
Quarter: 2009Q3

REPORT INFORMATION
  Report Type: 
  Country: None (occurrence: None)
  Receive Date: 20090729
  Receipt Date: 20090716
  Transmission Date: 20100115
  Serious: Yes (Hospitalization)
  Sender: FDA-Public Use
  Company Number: A-US2009-25151

PATIENT
  Age: 47 Year
  Sex: Male

DRUGS (10)
  1. TRACLEER [Suspect]
     Indication: PULMONARY ARTERIAL HYPERTENSION
     Dosage: 125 MG, BID, ORAL; 62.5 MG, BID, ORAL; 62.5 MG, BID, ORAL; 62.5 MG, BID, ORAL
     Route: 048
     Dates: start: 20081003, end: 20090322
  2. TRACLEER [Suspect]
     Indication: PULMONARY ARTERIAL HYPERTENSION
     Dosage: 125 MG, BID, ORAL; 62.5 MG, BID, ORAL; 62.5 MG, BID, ORAL; 62.5 MG, BID, ORAL
     Route: 048
     Dates: start: 20090322, end: 20090513
  3. TRACLEER [Suspect]
     Indication: PULMONARY ARTERIAL HYPERTENSION
     Dosage: 125 MG, BID, ORAL; 62.5 MG, BID, ORAL; 62.5 MG, BID, ORAL; 62.5 MG, BID, ORAL
     Route: 048
     Dates: start: 20090514, end: 20090528
  4. TRACLEER [Suspect]
     Indication: PULMONARY ARTERIAL HYPERTENSION
     Dosage: 125 MG, BID, ORAL; 62.5 MG, BID, ORAL; 62.5 MG, BID, ORAL; 62.5 MG, BID, ORAL
     Route: 048
     Dates: start: 20090605, end: 20090616
  5. REVATIO [Concomitant]
  6. PREVACID [Concomitant]
  7. REGLAN [Concomitant]
  8. XANAX [Concomitant]
  9. INSULIN LANTUS (INSULIN GLARGINE) [Concomitant]
  10. INSULIN NOVOLIN 70/30 (INSULIN HUMAN SEMISYNTHETIC, INSULIN ISOPHANE H [Concomitant]

REACTIONS (22)
  - ALANINE AMINOTRANSFERASE INCREASED [None]
  - AMMONIA INCREASED [None]
  - ASCITES [None]
  - ASPARTATE AMINOTRANSFERASE INCREASED [None]
  - BLOOD ALBUMIN DECREASED [None]
  - BLOOD ALKALINE PHOSPHATASE INCREASED [None]
  - BLOOD LACTATE DEHYDROGENASE INCREASED [None]
  - BLOOD PRESSURE INCREASED [None]
  - CONFUSIONAL STATE [None]
  - DYSPNOEA [None]
  - FUNCTIONAL RESIDUAL CAPACITY DECREASED [None]
  - GYNAECOMASTIA [None]
  - HEART SOUNDS ABNORMAL [None]
  - JUGULAR VEIN DISTENSION [None]
  - LIVER INJURY [None]
  - OCULAR ICTERUS [None]
  - OEDEMA PERIPHERAL [None]
  - OXYGEN CONSUMPTION INCREASED [None]
  - PALMAR ERYTHEMA [None]
  - PORTOPULMONARY HYPERTENSION [None]
  - TELANGIECTASIA [None]
  - WEIGHT INCREASED [None]
